FAERS Safety Report 8826619 (Version 1)
Quarter: 2012Q4

REPORT INFORMATION
  Report Type: 
  Country: GB (occurrence: GB)
  Receive Date: 20121005
  Receipt Date: 20121005
  Transmission Date: 20130627
  Serious: Yes (Disabling)
  Sender: FDA-Public Use
  Company Number: PHHY2012GB084667

PATIENT
  Sex: Male
  Weight: 90 kg

DRUGS (4)
  1. DOXAZOSIN [Suspect]
     Indication: ESSENTIAL HYPERTENSION
     Dosage: 2 mg, per day
     Route: 048
  2. DOXAZOSIN [Suspect]
     Dosage: 2mg BID
     Route: 048
     Dates: start: 20120415, end: 20120416
  3. AMLODIPINE BESYLATE [Suspect]
     Indication: HYPERTENSION
  4. INDAPAMIDE [Concomitant]

REACTIONS (16)
  - Dizziness [Recovered/Resolved]
  - Diarrhoea [Recovering/Resolving]
  - Abdominal pain [Recovering/Resolving]
  - Oxygen saturation decreased [Recovered/Resolved]
  - Hypertension [Recovering/Resolving]
  - Hypersensitivity [Recovering/Resolving]
  - Heart rate increased [Recovered/Resolved]
  - Arrhythmia [Recovered/Resolved]
  - Lacrimal disorder [Recovering/Resolving]
  - Electrocardiogram QT prolonged [Recovered/Resolved]
  - Paraesthesia [Recovering/Resolving]
  - Cough [Recovering/Resolving]
  - Eye discharge [Recovering/Resolving]
  - Ear pain [Recovering/Resolving]
  - Oedema [Recovering/Resolving]
  - Withdrawal syndrome [Recovering/Resolving]
